FAERS Safety Report 21365988 (Version 1)
Quarter: 2022Q3

REPORT INFORMATION
  Report Type: Report from Study
  Country: US (occurrence: US)
  Receive Date: 20220922
  Receipt Date: 20220922
  Transmission Date: 20221026
  Serious: Yes (Death)
  Sender: FDA-Public Use
  Company Number: US-ABBVIE-4128985

PATIENT
  Age: 83 Year
  Sex: Female

DRUGS (27)
  1. DUOPA [Suspect]
     Active Substance: CARBIDOPA\LEVODOPA
     Indication: Product used for unknown indication
     Route: 050
     Dates: start: 20170619
  2. DUOPA [Suspect]
     Active Substance: CARBIDOPA\LEVODOPA
  3. Probiotic 10B Cell Cap [Concomitant]
     Indication: Product used for unknown indication
     Dosage: 1 DOSE TWICE A DAY
     Route: 048
  4. TYLENOL EXTRA STRENGTH [Concomitant]
     Active Substance: ACETAMINOPHEN
     Indication: Product used for unknown indication
     Dosage: 0.3 PER DAY
     Route: 048
  5. Razadyne ER 16MG [Concomitant]
     Indication: Product used for unknown indication
     Route: 048
  6. Melatonin 3MG [Concomitant]
     Indication: Product used for unknown indication
     Dosage: AT BEDTIME
     Route: 048
  7. FLUTICASONE [Concomitant]
     Active Substance: FLUTICASONE
     Indication: Product used for unknown indication
     Dosage: 1 DOSE AS NEEDED
     Route: 061
  8. Triple Antibiotic [Concomitant]
     Indication: Product used for unknown indication
     Dosage: 1 DOSE AS NEEDED
     Route: 061
  9. CLONAZEPAM [Concomitant]
     Active Substance: CLONAZEPAM
     Indication: Product used for unknown indication
     Dosage: AT BEDTIME
     Route: 048
  10. Vitamin B-12 500MCG [Concomitant]
     Indication: Product used for unknown indication
     Route: 048
  11. Senna-S 8.6-50MG [Concomitant]
     Indication: Product used for unknown indication
     Dosage: 8.6-50MG
     Route: 048
  12. Carbidopa-Levodopa Entacapone 25-100-200MG [Concomitant]
     Indication: Product used for unknown indication
     Dosage: AT NIGHT, FORM STRENGTH 0.5 TABLET
  13. AMANTADINE [Concomitant]
     Active Substance: AMANTADINE
     Indication: Product used for unknown indication
     Dosage: 1 DOSE TWICE A DAY
  14. VOLTAREN ARTHRITIS PAIN [Concomitant]
     Active Substance: DICLOFENAC SODIUM
     Indication: Product used for unknown indication
     Dosage: TIDP
  15. Tums Ultra 400 Chew [Concomitant]
     Indication: Product used for unknown indication
     Dosage: 0.5 PER DAY
     Route: 048
  16. VENLAFAXINE [Concomitant]
     Active Substance: VENLAFAXINE HYDROCHLORIDE
     Indication: Product used for unknown indication
     Dosage: 1 DOSE TWICE A DAY
     Route: 048
  17. Calcium 600+Minerals [Concomitant]
     Indication: Product used for unknown indication
     Dosage: 0.5 PER DAY
  18. POLYETHYLENE GLYCOL 3350 [Concomitant]
     Active Substance: POLYETHYLENE GLYCOL 3350
     Indication: Product used for unknown indication
     Dosage: 1 PKT EVERY MORNING
     Route: 048
  19. Sinemet 25-100MG [Concomitant]
     Indication: Product used for unknown indication
     Dosage: 1 DOSE AS DIRECTED
     Route: 048
  20. Vitamin D3 1000UN [Concomitant]
     Indication: Product used for unknown indication
     Dosage: 1000 UNIT
     Route: 048
  21. BISACODYL [Concomitant]
     Active Substance: BISACODYL
     Indication: Product used for unknown indication
     Dosage: TIME INTERVAL: AS NECESSARY
     Route: 048
  22. ARTIFICIAL TEARS [Concomitant]
     Active Substance: GLYCERIN\HYPROMELLOSES\POLYETHYLENE GLYCOL 400
     Indication: Product used for unknown indication
     Dosage: AT BEDTIME BOTH EYES
  23. Fish Oil 1000MG [Concomitant]
     Indication: Product used for unknown indication
     Route: 048
  24. TAMSULOSIN [Concomitant]
     Active Substance: TAMSULOSIN
     Indication: Product used for unknown indication
     Route: 048
  25. Garlic 1000MG Softgel [Concomitant]
     Indication: Product used for unknown indication
     Dosage: SOFTGEL
     Route: 048
  26. Cranberry Juice Powder [Concomitant]
     Indication: Product used for unknown indication
     Dosage: 1 DOSE THREE TIMES A DAY
     Route: 048
  27. ONDANSETRON [Concomitant]
     Active Substance: ONDANSETRON
     Indication: Product used for unknown indication
     Dosage: Q4HP

REACTIONS (1)
  - Death [Fatal]

NARRATIVE: CASE EVENT DATE: 20220910
